FAERS Safety Report 5084318-8 (Version None)
Quarter: 2006Q3

REPORT INFORMATION
  Report Type: 
  Country: None (occurrence: None)
  Receive Date: 20060817
  Receipt Date: 20060817
  Transmission Date: 20061208
  Serious: Yes (Hospitalization)
  Sender: FDA-Public Use
  Company Number: None

PATIENT
  Age: 34 Year
  Sex: Female
  Weight: 91 kg

DRUGS (2)
  1. TEGASEROD MALEATE (ZELNORM) 2 MG TABLETS (NOVARTIS) [Suspect]
     Indication: CONSTIPATION
     Dosage: 6MG  BID  PO
     Route: 048
     Dates: start: 20060509, end: 20060510
  2. TEGASEROD MALEATE (ZELNORM) 2 MG TABLETS (NOVARTIS) [Suspect]
     Indication: IRRITABLE BOWEL SYNDROME
     Dosage: 6MG  BID  PO
     Route: 048
     Dates: start: 20060509, end: 20060510

REACTIONS (1)
  - COLITIS ISCHAEMIC [None]
